FAERS Safety Report 20557273 (Version 2)
Quarter: 2022Q1

REPORT INFORMATION
  Report Type: Spontaneous
  Country: TR (occurrence: TR)
  Receive Date: 20220307
  Receipt Date: 20220330
  Transmission Date: 20220423
  Serious: Yes (Hospitalization)
  Sender: FDA-Public Use
  Company Number: TR-NOVOPROD-894100

PATIENT
  Sex: Male
  Weight: 4.3 kg

DRUGS (2)
  1. LEVEMIR [Suspect]
     Active Substance: INSULIN DETEMIR
     Indication: Gestational diabetes
     Dosage: 6 IU, QD
     Route: 064
     Dates: start: 20211204
  2. LEVEMIR [Suspect]
     Active Substance: INSULIN DETEMIR
     Dosage: 10 IU, QD
     Route: 064
     Dates: start: 20211217, end: 20211230

REACTIONS (4)
  - Respiratory disorder neonatal [Recovered/Resolved]
  - Jaundice neonatal [Recovered/Resolved]
  - Sepsis neonatal [Recovered/Resolved]
  - Foetal exposure during pregnancy [Recovered/Resolved]

NARRATIVE: CASE EVENT DATE: 20211204
